FAERS Safety Report 10434034 (Version 1)
Quarter: 2014Q3

REPORT INFORMATION
  Report Type: Spontaneous
  Country: CN (occurrence: CN)
  Receive Date: 20140905
  Receipt Date: 20140905
  Transmission Date: 20150326
  Serious: Yes (Other)
  Sender: FDA-Public Use
  Company Number: CN-GLAXOSMITHKLINE-B1029550A

PATIENT
  Sex: Male

DRUGS (2)
  1. HEPTODIN [Suspect]
     Active Substance: LAMIVUDINE
     Dosage: 1TAB PER DAY
  2. HEPSERA [Concomitant]
     Active Substance: ADEFOVIR DIPIVOXIL

REACTIONS (3)
  - Hepatitis B [Unknown]
  - Drug resistance [Unknown]
  - Transaminases increased [Unknown]
